FAERS Safety Report 17467524 (Version 1)
Quarter: 2020Q1

REPORT INFORMATION
  Report Type: Spontaneous
  Country: PT (occurrence: PT)
  Receive Date: 20200227
  Receipt Date: 20200227
  Transmission Date: 20200409
  Serious: Yes (Hospitalization, Other)
  Sender: FDA-Public Use
  Company Number: PT-TEVA-2020-PT-1189341

PATIENT
  Age: 55 Year
  Sex: Male

DRUGS (3)
  1. CEFTRIAXONE. [Concomitant]
     Active Substance: CEFTRIAXONE
  2. CLARITHROMYCIN. [Concomitant]
     Active Substance: CLARITHROMYCIN
  3. BACTRIM [Suspect]
     Active Substance: SULFAMETHOXAZOLE\TRIMETHOPRIM
     Indication: PULMONARY NOCARDIOSIS
     Route: 048

REACTIONS (12)
  - Chills [Unknown]
  - Rash maculo-papular [Unknown]
  - Coagulopathy [Unknown]
  - Malaise [Unknown]
  - Inflammatory marker increased [Unknown]
  - Cholestasis [Unknown]
  - Chills [Recovered/Resolved]
  - Respiratory failure [Recovered/Resolved]
  - Gastrointestinal disorder [Recovered/Resolved]
  - Ocular hyperaemia [Unknown]
  - Pyrexia [Recovered/Resolved]
  - Abdominal pain upper [Unknown]
